FAERS Safety Report 4452878-3 (Version None)
Quarter: 2004Q3

REPORT INFORMATION
  Report Type: 
  Country: None (occurrence: None)
  Receive Date: 20040916
  Receipt Date: 20040908
  Transmission Date: 20050211
  Serious: No
  Sender: FDA-Public Use
  Company Number: 2004UW13682

PATIENT
  Age: 84 Year
  Sex: Male
  Weight: 77.1115 kg

DRUGS (4)
  1. ZOLADEX [Suspect]
     Indication: PROSTATE CANCER
     Dosage: 10.8 MG SQ
     Route: 058
     Dates: start: 20031101
  2. CELEBREX [Concomitant]
  3. GLUCOSAMINE [Concomitant]
  4. BLOOD PRESSURE MEDICATION [Concomitant]

REACTIONS (9)
  - ARTHRALGIA [None]
  - BLOOD PRESSURE INCREASED [None]
  - CARPAL TUNNEL SYNDROME [None]
  - CORONARY ARTERY OCCLUSION [None]
  - HOT FLUSH [None]
  - LOCALISED OEDEMA [None]
  - MUSCLE CONTRACTURE [None]
  - PAIN IN EXTREMITY [None]
  - WEIGHT INCREASED [None]
